FAERS Safety Report 12444590 (Version 1)
Quarter: 2016Q2

REPORT INFORMATION
  Report Type: Spontaneous
  Country: US (occurrence: US)
  Receive Date: 20160607
  Receipt Date: 20160607
  Transmission Date: 20160815
  Serious: No
  Sender: FDA-Public Use
  Company Number: US-PERRIGO-16US014864

PATIENT
  Age: 46 Year
  Sex: Female
  Weight: 90.7 kg

DRUGS (2)
  1. MINOXIDIL. [Suspect]
     Active Substance: MINOXIDIL
     Indication: ALOPECIA
     Dosage: 1/2 CAPFUL, NIGHTLY
     Route: 061
     Dates: start: 201512
  2. BETA BLOCKER [Concomitant]
     Active Substance: UNSPECIFIED INGREDIENT
     Indication: TACHYCARDIA
     Dosage: UNK
     Route: 065
     Dates: start: 2014

REACTIONS (2)
  - Hypertrichosis [Recovered/Resolved]
  - Off label use [Not Recovered/Not Resolved]

NARRATIVE: CASE EVENT DATE: 201512
